FAERS Safety Report 5361564-7 (Version None)
Quarter: 2007Q2

REPORT INFORMATION
  Report Type: 
  Country: None (occurrence: None)
  Receive Date: 20070619
  Receipt Date: 20070608
  Transmission Date: 20071010
  Serious: Yes (Other)
  Sender: FDA-Public Use
  Company Number: DE-JNJFOC-20070505018

PATIENT
  Sex: Female

DRUGS (31)
  1. LEVOFLOXACIN [Suspect]
     Indication: MALAISE
     Route: 065
  2. LEVOFLOXACIN [Suspect]
     Indication: CHILLS
     Route: 065
  3. LEVOFLOXACIN [Suspect]
     Indication: BODY TEMPERATURE INCREASED
     Route: 065
  4. CYCLOSPORINE [Suspect]
     Route: 048
  5. CYCLOSPORINE [Suspect]
     Route: 048
  6. CYCLOSPORINE [Suspect]
     Indication: HEART TRANSPLANT
     Route: 048
  7. CYCLOSPORINE [Suspect]
     Route: 042
  8. CERTICAN [Suspect]
     Indication: HEART TRANSPLANT
     Route: 065
  9. BASILIXIMAB [Suspect]
     Route: 042
  10. BASILIXIMAB [Suspect]
     Indication: HEART TRANSPLANT
     Route: 042
  11. AMPICILLIN [Suspect]
     Indication: CHILLS
     Route: 065
  12. AMPICILLIN [Suspect]
     Indication: MALAISE
     Route: 065
  13. AMPICILLIN [Suspect]
     Indication: BODY TEMPERATURE INCREASED
     Route: 065
  14. SULBACTAM [Suspect]
     Indication: MALAISE
     Route: 065
  15. SULBACTAM [Suspect]
     Indication: CHILLS
     Route: 065
  16. SULBACTAM [Suspect]
     Indication: BODY TEMPERATURE INCREASED
     Route: 065
  17. TRIMETHOPRIM [Concomitant]
     Route: 065
  18. SULFAMETHOXAZOLE [Concomitant]
     Route: 065
  19. AMPHOTERICIN B [Concomitant]
     Route: 065
  20. VALPORIC ACID [Concomitant]
     Route: 065
  21. RAMIPRIL [Concomitant]
     Route: 065
  22. RANITIDINE [Concomitant]
     Route: 065
  23. AMLODIPINE [Concomitant]
     Route: 065
  24. MAGNESIUM SULFATE [Concomitant]
     Route: 065
  25. CALCIUM CHLORIDE [Concomitant]
     Route: 065
  26. COLECALCIFEROL [Concomitant]
     Route: 065
  27. FERROUS SULFATE TAB [Concomitant]
     Route: 065
  28. VITAMIN CAP [Concomitant]
     Route: 065
  29. PARACETAMOL [Concomitant]
     Route: 065
  30. METHYLPRENISOLONE [Concomitant]
     Indication: IMMUNOSUPPRESSANT DRUG THERAPY
     Route: 042
  31. PREDNISOLONE [Concomitant]
     Route: 048

REACTIONS (7)
  - BODY TEMPERATURE INCREASED [None]
  - GRAFT DYSFUNCTION [None]
  - GRAND MAL CONVULSION [None]
  - HYPERCHOLESTEROLAEMIA [None]
  - LIVER FUNCTION TEST ABNORMAL [None]
  - PERICARDIAL EFFUSION [None]
  - RENAL FAILURE CHRONIC [None]
